FAERS Safety Report 4831836-0 (Version None)
Quarter: 2005Q4

REPORT INFORMATION
  Report Type: 
  Country: None (occurrence: None)
  Receive Date: 20051118
  Receipt Date: 20051116
  Transmission Date: 20060501
  Serious: Yes (Other)
  Sender: FDA-Public Use
  Company Number: JP-SANOFI-SYNTHELABO-F01200502448

PATIENT
  Sex: Female
  Weight: 59 kg

DRUGS (3)
  1. OXALIPLATIN [Suspect]
     Indication: COLON CANCER
     Route: 042
     Dates: start: 20050525, end: 20050525
  2. FLUOROURACIL [Suspect]
     Indication: COLON CANCER
     Dosage: 3696 MG/BODY=2400 MG/M2 AS CONTINUES INFUSION
     Route: 042
     Dates: start: 20050525, end: 20050526
  3. CALCIUM LEVOFOLINATE [Suspect]
     Indication: COLON CANCER
     Route: 042
     Dates: start: 20050525, end: 20050525

REACTIONS (1)
  - HYPERKALAEMIA [None]
